FAERS Safety Report 8669170 (Version 3)
Quarter: 2012Q4

REPORT INFORMATION
  Report Type: Spontaneous
  Country: US (occurrence: None)
  Receive Date: 20120629
  Receipt Date: 20120816
  Transmission Date: 20130627
  Serious: Yes (Disabling, Other)
  Sender: FDA-Public Use
  Company Number: ACO_30812_2012

PATIENT
  Age: 60 Year
  Sex: Male

DRUGS (5)
  1. AMPYRA [Suspect]
     Indication: PRODUCT USED FOR UNKNOWN INDICATION
     Dosage: 10 MG, Q 12 HRS, ORAL
     Route: 048
     Dates: start: 20100409, end: 20100609
  2. PROVIGIL (MODAFINIL) [Concomitant]
  3. ATORVASTATIN (ATORVASTATIN) [Concomitant]
  4. OXYBUTYNIN (OXYBUTYNIN) [Concomitant]
  5. NAPROXEN (NAPROXEN) [Concomitant]

REACTIONS (4)
  - Syncope [None]
  - Dysstasia [None]
  - Fall [None]
  - JC virus test positive [None]
